FAERS Safety Report 4988879-6 (Version None)
Quarter: 2006Q2

REPORT INFORMATION
  Report Type: 
  Country: None (occurrence: None)
  Receive Date: 20060425
  Receipt Date: 20040113
  Transmission Date: 20061013
  Serious: Yes (Other)
  Sender: FDA-Public Use
  Company Number: 8004976

PATIENT

DRUGS (2)
  1. KEPPRA [Suspect]
     Dosage: PO
     Route: 048
  2. KALETRA [Suspect]

REACTIONS (2)
  - DRUG DISPENSING ERROR [None]
  - WRONG DRUG ADMINISTERED [None]
